FAERS Safety Report 4450325-9 (Version None)
Quarter: 2004Q3

REPORT INFORMATION
  Report Type: 
  Country: None (occurrence: None)
  Receive Date: 20040914
  Receipt Date: 20040830
  Transmission Date: 20050211
  Serious: Yes (Life-Threatening, Hospitalization)
  Sender: FDA-Public Use
  Company Number: 04P-087-0271922-00

PATIENT
  Age: 28 Year
  Sex: Male
  Weight: 87 kg

DRUGS (8)
  1. OMNICEF [Suspect]
     Indication: BRONCHITIS ACUTE
     Dosage: 100 MG, 3 IN 1 D, PER ORAL
     Route: 048
     Dates: start: 20040702, end: 20040704
  2. BIAXIN [Suspect]
     Indication: PNEUMONIA MYCOPLASMAL
     Dates: start: 20040706, end: 20040710
  3. SEROQUEL [Suspect]
     Indication: SCHIZOPHRENIA
     Dosage: 100 MG, 3 IN 1 D, PER ORAL : 600 MG , 1 IN 1 D , PER ORAL
     Route: 048
     Dates: start: 20040625, end: 20040712
  4. SEROQUEL [Suspect]
     Indication: SCHIZOPHRENIA
     Dosage: 100 MG, 3 IN 1 D, PER ORAL : 600 MG , 1 IN 1 D , PER ORAL
     Route: 048
     Dates: start: 20040630, end: 20040712
  5. PL GRAN. [Suspect]
     Indication: NASOPHARYNGITIS
     Dosage: 1 GM, 3 IN 1 D, PER ORAL
     Route: 048
     Dates: start: 20040701, end: 20040704
  6. LEVOMEPROMAZINE [Concomitant]
  7. CIPROFLOXACIN [Concomitant]
  8. MINOCYCLINE HCL [Concomitant]

REACTIONS (10)
  - ANOREXIA [None]
  - BRONCHITIS ACUTE [None]
  - CHILLS [None]
  - EOSINOPHIL COUNT INCREASED [None]
  - EOSINOPHILIC PNEUMONIA [None]
  - HEPATIC FUNCTION ABNORMAL [None]
  - LUNG CREPITATION [None]
  - NASOPHARYNGITIS [None]
  - OXYGEN SATURATION DECREASED [None]
  - PNEUMONIA MYCOPLASMAL [None]
